FAERS Safety Report 20822186 (Version 1)
Quarter: 2022Q2

REPORT INFORMATION
  Report Type: Spontaneous
  Country: US (occurrence: US)
  Receive Date: 20220512
  Receipt Date: 20220512
  Transmission Date: 20220721
  Serious: No
  Sender: FDA-Public Use
  Company Number: US-PFIZER INC-202200526064

PATIENT
  Age: 39 Year
  Sex: Male
  Weight: 82.55 kg

DRUGS (1)
  1. XELJANZ [Suspect]
     Active Substance: TOFACITINIB CITRATE
     Indication: Crohn^s disease
     Dosage: 10 MG, 2X/DAY (TWICE A DAY)
     Dates: start: 20220222, end: 20220402

REACTIONS (5)
  - Off label use [Unknown]
  - Oral discomfort [Recovered/Resolved]
  - Oral pain [Recovered/Resolved]
  - Erythema [Recovered/Resolved]
  - Skin exfoliation [Unknown]

NARRATIVE: CASE EVENT DATE: 20220222
